FAERS Safety Report 4970120-1 (Version None)
Quarter: 2006Q2

REPORT INFORMATION
  Report Type: 
  Country: None (occurrence: None)
  Receive Date: 20060406
  Receipt Date: 20060324
  Transmission Date: 20061013
  Serious: Yes (Death)
  Sender: FDA-Public Use
  Company Number: 2005144880

PATIENT
  Sex: Female

DRUGS (7)
  1. NEURONTIN [Suspect]
     Indication: NEUROPATHY PERIPHERAL
  2. PROZAC [Concomitant]
  3. TRAZODONE HCL [Concomitant]
  4. XANAX [Concomitant]
  5. MIDRIN (DICHLORALPHENAZONE, ISOMETHEPIENE, PARACETAMOL) [Concomitant]
  6. LORCET-HD [Concomitant]
  7. NITROGLYCERIN [Concomitant]

REACTIONS (5)
  - COMPLETED SUICIDE [None]
  - DRUG INEFFECTIVE [None]
  - DRUG SCREEN POSITIVE [None]
  - GUN SHOT WOUND [None]
  - INTENTIONAL SELF-INJURY [None]
